FAERS Safety Report 10560030 (Version 1)
Quarter: 2014Q4

REPORT INFORMATION
  Report Type: Spontaneous
  Country: US (occurrence: None)
  Receive Date: 20141030
  Receipt Date: 20141030
  Transmission Date: 20150529
  Serious: Yes (Other)
  Sender: FDA-Public Use
  Company Number: 2590850

PATIENT
  Age: 58 Year
  Sex: Female
  Weight: 87.4 kg

DRUGS (1)
  1. METRONIDAZOLE INJ. IN FLEXIBLE CONT. (METRONIDAZOLE) [Suspect]
     Active Substance: METRONIDAZOLE
     Route: 041
     Dates: start: 20141014, end: 20141014

REACTIONS (2)
  - Vomiting [None]
  - Nausea [None]

NARRATIVE: CASE EVENT DATE: 20141014
